FAERS Safety Report 4682700-1 (Version None)
Quarter: 2005Q2

REPORT INFORMATION
  Report Type: 
  Country: None (occurrence: None)
  Receive Date: 20050606
  Receipt Date: 20050506
  Transmission Date: 20051028
  Serious: Yes (Hospitalization)
  Sender: FDA-Public Use
  Company Number: PHBS2005BR06474

PATIENT
  Age: 44 Day
  Sex: Male
  Weight: 3 kg

DRUGS (7)
  1. TOFRANIL [Suspect]
  2. TOFRANIL [Suspect]
     Route: 064
  3. OLCADIL [Suspect]
  4. OLCADIL [Suspect]
     Route: 064
  5. DACTIL [Concomitant]
     Route: 064
  6. BUSCOPAN [Concomitant]
     Route: 064
  7. AEROLIN [Concomitant]
     Route: 064

REACTIONS (9)
  - AGITATION [None]
  - APNOEA [None]
  - CONVULSION [None]
  - CONVULSION NEONATAL [None]
  - CRYING [None]
  - DRUG EXPOSURE DURING PREGNANCY [None]
  - LUNG DISORDER [None]
  - NEONATAL APNOEIC ATTACK [None]
  - PREMATURE BABY [None]
